FAERS Safety Report 16117037 (Version 1)
Quarter: 2019Q1

REPORT INFORMATION
  Report Type: Spontaneous
  Country: US (occurrence: US)
  Receive Date: 20190326
  Receipt Date: 20190326
  Transmission Date: 20190418
  Serious: No
  Sender: FDA-Public Use
  Company Number: US-PFIZER INC-2019115405

PATIENT
  Age: 53 Year
  Sex: Female

DRUGS (1)
  1. LEVOXYL [Suspect]
     Active Substance: LEVOTHYROXINE SODIUM
     Indication: HYPOTHYROIDISM
     Dosage: 150 UG, 1X/DAY (MORNING BEFORE BREAKFAST )
     Route: 048
     Dates: start: 1992

REACTIONS (3)
  - Product quality issue [Unknown]
  - Weight increased [Unknown]
  - Blood thyroid stimulating hormone increased [Unknown]
